FAERS Safety Report 5906970-4 (Version None)
Quarter: 2008Q4

REPORT INFORMATION
  Report Type: 
  Country: None (occurrence: None)
  Receive Date: 20081003
  Receipt Date: 20080930
  Transmission Date: 20090506
  Serious: Yes (Death)
  Sender: FDA-Public Use
  Company Number: FR-JNJFOC-20080906101

PATIENT
  Age: 30 Year
  Sex: Male

DRUGS (4)
  1. RISPERDAL CONSTA [Suspect]
     Indication: SCHIZOPHRENIA
     Route: 030
  2. SEROPLEX [Concomitant]
  3. AOTAL [Concomitant]
     Indication: ALCOHOLISM
  4. ARTANE [Concomitant]

REACTIONS (1)
  - DEATH [None]
